FAERS Safety Report 8835174 (Version 1)
Quarter: 2012Q4

REPORT INFORMATION
  Report Type: Report from Study
  Country: CA (occurrence: CA)
  Receive Date: 20121011
  Receipt Date: 20121011
  Transmission Date: 20130627
  Serious: Yes (Other)
  Sender: FDA-Public Use
  Company Number: CA-JNJFOC-20121002065

PATIENT
  Age: 15 Year
  Sex: Male
  Weight: 52.2 kg

DRUGS (1)
  1. REMICADE [Suspect]
     Indication: PSORIASIS
     Dosage: patient was receiving his loading dose
     Route: 042
     Dates: start: 20120824

REACTIONS (1)
  - Wound [Unknown]
